FAERS Safety Report 23181807 (Version 2)
Quarter: 2024Q1

REPORT INFORMATION
  Report Type: Report from Study
  Country: US (occurrence: US)
  Receive Date: 20231114
  Receipt Date: 20240117
  Transmission Date: 20240409
  Serious: Yes (Other)
  Sender: FDA-Public Use
  Company Number: US-BEH-2023165148

PATIENT
  Age: 56 Year
  Sex: Female
  Weight: 107.94 kg

DRUGS (2)
  1. BERINERT [Suspect]
     Active Substance: HUMAN C1-ESTERASE INHIBITOR
     Indication: Hereditary angioedema
     Dosage: 6500 INTERNATIONAL UNIT/KILOGRAM, QW
     Route: 058
  2. BERINERT [Suspect]
     Active Substance: HUMAN C1-ESTERASE INHIBITOR
     Indication: Prophylaxis

REACTIONS (3)
  - Cerebrovascular accident [Recovering/Resolving]
  - Memory impairment [Recovering/Resolving]
  - Cerebrovascular accident [Unknown]
